FAERS Safety Report 12110359 (Version 1)
Quarter: 2016Q1

REPORT INFORMATION
  Report Type: Spontaneous
  Country: US (occurrence: None)
  Receive Date: 20160223
  Receipt Date: 20160223
  Transmission Date: 20160526
  Serious: Yes (Other)
  Sender: FDA-Public Use
  Company Number: None

PATIENT

DRUGS (1)
  1. RACEPINEPHRINE [Suspect]
     Active Substance: RACEPINEPHRINE
     Indication: DRUG THERAPY
     Dates: start: 20160215, end: 20160222

REACTIONS (2)
  - Product packaging quantity issue [None]
  - Incorrect dose administered [None]

NARRATIVE: CASE EVENT DATE: 20160215
